FAERS Safety Report 9740073 (Version 1)
Quarter: 2013Q4

REPORT INFORMATION
  Report Type: Spontaneous
  Country: US (occurrence: US)
  Receive Date: 20131209
  Receipt Date: 20131209
  Transmission Date: 20140711
  Serious: Yes (Hospitalization)
  Sender: FDA-Public Use
  Company Number: US-GLAXOSMITHKLINE-A1052711A

PATIENT
  Sex: Female

DRUGS (3)
  1. ADVAIR [Suspect]
     Indication: ASTHMA
     Dosage: 1PUFF PER DAY
     Route: 055
  2. VENTOLIN HFA [Suspect]
     Indication: ASTHMA
     Route: 055
  3. TUMS [Concomitant]

REACTIONS (3)
  - Asthma [Unknown]
  - Exposure to mould [Unknown]
  - Intentional underdose [Unknown]
